FAERS Safety Report 9259252 (Version 1)
Quarter: 2013Q2

REPORT INFORMATION
  Report Type: Spontaneous
  Country: GR (occurrence: GR)
  Receive Date: 20130426
  Receipt Date: 20130426
  Transmission Date: 20140414
  Serious: Yes (Death)
  Sender: FDA-Public Use
  Company Number: GR-ASTRAZENECA-2013SE28421

PATIENT
  Age: 65 Year
  Sex: Male

DRUGS (4)
  1. MEROPENEM [Suspect]
     Indication: VIBRIO TEST POSITIVE
     Route: 042
  2. CIPROFLOXACIN [Suspect]
     Indication: VIBRIO TEST POSITIVE
  3. CLINDAMYCIN [Suspect]
     Indication: VIBRIO TEST POSITIVE
  4. CORTIZONE [Concomitant]
     Indication: SYSTEMIC LUPUS ERYTHEMATOSUS

REACTIONS (1)
  - Drug ineffective [Fatal]
